FAERS Safety Report 5154105-0 (Version None)
Quarter: 2006Q4

REPORT INFORMATION
  Report Type: 
  Country: None (occurrence: None)
  Receive Date: 20061120
  Receipt Date: 20051214
  Transmission Date: 20070319
  Serious: Yes (Hospitalization)
  Sender: FDA-Public Use
  Company Number: US-ROCHE-428836

PATIENT
  Age: 30 Year
  Sex: Female
  Weight: 72.6 kg

DRUGS (24)
  1. ACCUTANE [Suspect]
     Route: 048
     Dates: start: 20011010, end: 20011226
  2. ACCUTANE [Suspect]
     Route: 048
     Dates: start: 20020110, end: 20020403
  3. AZATHIOPRINE [Suspect]
     Indication: CROHN'S DISEASE
     Route: 065
     Dates: start: 20041227, end: 20050115
  4. DOXYCYCLINE [Concomitant]
     Indication: ACNE
     Route: 048
  5. THROAT LOZENGES [Concomitant]
     Indication: PHARYNGITIS
     Dates: start: 20020215
  6. DECONAMINE SR [Concomitant]
     Indication: UPPER RESPIRATORY TRACT INFECTION
     Dates: start: 20021009
  7. AUGMENTIN '125' [Concomitant]
     Indication: UPPER RESPIRATORY TRACT INFECTION
     Dates: start: 20021009
  8. HUMIBID [Concomitant]
     Indication: UPPER RESPIRATORY TRACT INFECTION
     Dates: start: 20021009
  9. FLONASE [Concomitant]
     Dates: start: 20031125
  10. ALLEGRA [Concomitant]
     Dates: start: 20031125
  11. ZITHROMAX [Concomitant]
     Indication: BRONCHITIS
     Dates: start: 20041113
  12. ROBITUSSIN [Concomitant]
     Indication: BRONCHITIS
     Dates: start: 20041113
  13. SUDAFED 12 HOUR [Concomitant]
     Indication: BRONCHITIS
     Dates: start: 20041113
  14. TYLENOL [Concomitant]
     Indication: BRONCHITIS
     Dates: start: 20041113
  15. LEVOFLOXACIN [Concomitant]
     Indication: PYELONEPHRITIS
     Dates: start: 20030703
  16. VICODIN [Concomitant]
     Indication: PYELONEPHRITIS
     Dates: start: 20030703
  17. MOTRIN [Concomitant]
     Indication: PYELONEPHRITIS
     Dates: start: 20030703
  18. PHENAZOPYRIDINE HCL TAB [Concomitant]
     Indication: PYELONEPHRITIS
     Dates: start: 20030703
  19. EFFEXOR [Concomitant]
     Dates: start: 20031126
  20. KLONOPIN [Concomitant]
     Dates: start: 20051126
  21. ALESSE [Concomitant]
     Dates: start: 20031126
  22. PAXIL [Concomitant]
     Indication: DEPRESSION
  23. ROWASA [Concomitant]
  24. CIPRO [Concomitant]

REACTIONS (53)
  - BLOOD CALCIUM DECREASED [None]
  - BLOOD CHLORIDE DECREASED [None]
  - BLOOD CREATININE INCREASED [None]
  - BLOOD GLUCOSE DECREASED [None]
  - BLOOD GLUCOSE INCREASED [None]
  - BLOOD PHOSPHORUS DECREASED [None]
  - BLOOD UREA DECREASED [None]
  - BRONCHITIS [None]
  - COLITIS [None]
  - CONJUNCTIVITIS [None]
  - CONSTIPATION [None]
  - COUGH [None]
  - CROHN'S DISEASE [None]
  - DEHYDRATION [None]
  - DEPRESSION [None]
  - DIARRHOEA [None]
  - DYSPNOEA [None]
  - ECZEMA [None]
  - FATIGUE [None]
  - GASTROINTESTINAL DISORDER [None]
  - GENERALISED ANXIETY DISORDER [None]
  - GRANULOMA SKIN [None]
  - HAEMATOCRIT DECREASED [None]
  - HAEMOGLOBIN DECREASED [None]
  - HAEMORRHOIDS [None]
  - HEADACHE [None]
  - HYPERKERATOSIS [None]
  - INFLAMMATORY BOWEL DISEASE [None]
  - MALIGNANT MELANOMA [None]
  - MIGRAINE [None]
  - MUSCLE TWITCHING [None]
  - MUSCULAR WEAKNESS [None]
  - MYALGIA [None]
  - NEPHRITIS INTERSTITIAL [None]
  - PAIN IN EXTREMITY [None]
  - PHARYNGITIS [None]
  - PLATELET COUNT INCREASED [None]
  - PYELONEPHRITIS [None]
  - PYREXIA [None]
  - RASH [None]
  - RECTAL TENESMUS [None]
  - RED BLOOD CELL COUNT DECREASED [None]
  - RENAL FAILURE ACUTE [None]
  - RHINITIS ALLERGIC [None]
  - SERUM FERRITIN INCREASED [None]
  - SINUSITIS [None]
  - SKIN HYPERPIGMENTATION [None]
  - UPPER RESPIRATORY TRACT INFECTION [None]
  - UVEITIS [None]
  - VITAMIN B12 INCREASED [None]
  - VOMITING [None]
  - WEIGHT DECREASED [None]
  - WHEEZING [None]
